FAERS Safety Report 14789363 (Version 7)
Quarter: 2021Q3

REPORT INFORMATION
  Report Type: Spontaneous
  Country: ES (occurrence: ES)
  Receive Date: 20180423
  Receipt Date: 20210730
  Transmission Date: 20211014
  Serious: Yes (Hospitalization, Other)
  Sender: FDA-Public Use
  Company Number: ES-ACCORD-065895

PATIENT
  Age: 87 Year
  Sex: Male
  Weight: 87 kg

DRUGS (30)
  1. ALLOPURINOL. [Suspect]
     Active Substance: ALLOPURINOL
     Indication: HYPERURICAEMIA
     Dosage: UNSPECIFIED, ON ALLOPURINOL FOR 6 YEARS,
     Route: 065
     Dates: start: 20110101
  2. STELARA [Suspect]
     Active Substance: USTEKINUMAB
     Indication: ERYTHRODERMIC PSORIASIS
     Route: 058
     Dates: start: 20170803, end: 20170803
  3. NEOTIGASON [Suspect]
     Active Substance: ACITRETIN
     Indication: ERYTHRODERMIC PSORIASIS
     Dosage: DOSAGE FORM: UNSPECIFIED, ALSO RECEIVED 50 MG,
     Dates: start: 20170728, end: 20170728
  4. OMNIC OCAS [Concomitant]
     Active Substance: TAMSULOSIN HYDROCHLORIDE
  5. DACORTIN [Concomitant]
     Active Substance: PREDNISONE
     Route: 065
     Dates: end: 20170801
  6. ACITRETIN. [Concomitant]
     Active Substance: ACITRETIN
     Dates: start: 20170728
  7. ZYLORIC [Concomitant]
     Active Substance: ALLOPURINOL
     Route: 065
  8. SPIRONOLACTONE. [Concomitant]
     Active Substance: SPIRONOLACTONE
     Indication: PRODUCT USED FOR UNKNOWN INDICATION
     Dosage: DOSAGE FORM: UNSPECIFIED, TOTAL 1200 MG ONCE A DAY
     Route: 065
     Dates: end: 20170802
  9. JUNIPER OIL [Concomitant]
     Active Substance: HERBALS\JUNIPERUS COMMUNIS WHOLE
     Dosage: DOSAGE FORM: UNSPECIFIED, BATHROOMS WITH JUNIPER OIL ONCE A DAY FOR 20 MINUTES.
     Route: 065
  10. PARACETAMOL [Concomitant]
     Active Substance: ACETAMINOPHEN
     Route: 065
  11. EUCERIN [Concomitant]
     Active Substance: ENSULIZOLE\EUCERIN\OCTINOXATE\OCTISALATE\TITANIUM DIOXIDE\ZINC OXIDE
     Route: 065
  12. NOLOTIL (METAMIZOLE SODIUM) [Suspect]
     Active Substance: METAMIZOLE SODIUM
     Indication: PRODUCT USED FOR UNKNOWN INDICATION
     Dosage: DOSAGE FORM: UNSPECIFIED, ALSO RECEIVED WITH 1 DAY INTERVAL  FROM 01?AUG?2017
     Route: 042
     Dates: start: 201708
  13. ALDACTONE [Concomitant]
     Active Substance: SPIRONOLACTONE
     Route: 065
     Dates: end: 20170802
  14. CALCIPOTRIOL AND BETAMETHASONE [Concomitant]
     Active Substance: BETAMETHASONE\CALCIPOTRIENE
     Dosage: DOSAGE FORM: FOAM
     Route: 065
     Dates: start: 201704
  15. METAMIZOLE SODIUM [Concomitant]
     Active Substance: METAMIZOLE SODIUM
     Indication: PRODUCT USED FOR UNKNOWN INDICATION
     Dosage: DOSAGE FORM: UNSPECIFIED, TOTAL 1200 MG ONCE A DAY
     Route: 042
  16. FLUCONAZOLE. [Suspect]
     Active Substance: FLUCONAZOLE
     Indication: PRODUCT USED FOR UNKNOWN INDICATION
     Dosage: DOSAGE FORM: UNSPECIFIED, ON ALLOPURINOL FOR 6 YEARS
     Route: 042
     Dates: start: 20170810
  17. MONOLITUM [Concomitant]
     Active Substance: LANSOPRAZOLE
     Dates: start: 20170401
  18. AUXINA A+E [Concomitant]
     Active Substance: RETINOL\TOCOPHEROL
     Route: 048
     Dates: start: 201704, end: 20170726
  19. DIPROGENTA [Concomitant]
     Active Substance: BETAMETHASONE DIPROPIONATE\GENTAMICIN SULFATE
     Route: 061
  20. SEGURIL [Concomitant]
     Active Substance: FUROSEMIDE
     Dosage: DOSAGE FORM: UNSPECIFIED, 1.5 (60 MG/ DAY)
     Route: 065
     Dates: start: 20170802, end: 20170802
  21. LISALGIL [Suspect]
     Active Substance: METAMIZOLE SODIUM
     Indication: PRODUCT USED FOR UNKNOWN INDICATION
     Dosage: UNSPECIFIED, TOTAL 1200 MG ONCE A DAY
     Route: 042
     Dates: start: 201708
  22. AZITHROMYCIN ANHYDROUS. [Concomitant]
     Active Substance: AZITHROMYCIN ANHYDROUS
     Dosage: DOSAGE FORM: UNSPECIFIED
     Route: 065
     Dates: end: 20170812
  23. CEFTRIAXONE. [Suspect]
     Active Substance: CEFTRIAXONE
     Indication: PRODUCT USED FOR UNKNOWN INDICATION
     Dosage: DOSAGE FORM: UNSPECIFIED, ON ALLOPURINOL FOR 6 YEARS
     Route: 030
     Dates: start: 20170801, end: 20170812
  24. ACICLOVIR [Suspect]
     Active Substance: ACYCLOVIR
     Indication: ERYTHRODERMIC PSORIASIS
     Dosage: DOSAGE FORM: UNSPECIFIED, ALSO SUBCUTANEOUS 45 MG, ALSO 1200 MG
     Route: 042
     Dates: start: 20170810
  25. SIMVASTATIN. [Concomitant]
     Active Substance: SIMVASTATIN
     Route: 065
  26. BRETARIS GENUAIR [Concomitant]
     Active Substance: ACLIDINIUM BROMIDE
     Dosage: DOSAGE FORM: INHALATION, 1 INHALATION
     Route: 055
  27. LORATADINE. [Concomitant]
     Active Substance: LORATADINE
     Dosage: ALSO RECEIVE 30 MG
     Route: 048
     Dates: start: 20170726
  28. BILAXTEN [Concomitant]
     Active Substance: BILASTINE
     Dosage: ALSO RECEIVED 40 MG
     Route: 065
     Dates: end: 20170726
  29. ENALAPRIL [Concomitant]
     Active Substance: ENALAPRIL
     Route: 065
  30. SALMETEROL [Concomitant]
     Active Substance: SALMETEROL
     Dosage: DOSAGE FORM: INHALATION, 1 INHALATION
     Route: 065

REACTIONS (3)
  - Oral candidiasis [Recovering/Resolving]
  - Toxic epidermal necrolysis [Recovered/Resolved]
  - Fungal infection [Recovering/Resolving]

NARRATIVE: CASE EVENT DATE: 2017
